FAERS Safety Report 8565059 (Version 3)
Quarter: 2013Q2

REPORT INFORMATION
  Report Type: Report from Study
  Country: CA (occurrence: CA)
  Receive Date: 20120516
  Receipt Date: 20130515
  Transmission Date: 20140414
  Serious: Yes (Other)
  Sender: FDA-Public Use
  Company Number: CA-ABBOTT-12P-028-0894958-00

PATIENT
  Sex: Male
  Weight: 99.88 kg

DRUGS (3)
  1. LUPRON DEPOT 30 MG [Suspect]
     Indication: PROSTATE CANCER
     Route: 030
     Dates: start: 20060109
  2. PLAVIX [Concomitant]
     Indication: PRODUCT USED FOR UNKNOWN INDICATION
  3. ASA [Concomitant]
     Indication: PRODUCT USED FOR UNKNOWN INDICATION

REACTIONS (6)
  - Ligament rupture [Unknown]
  - Tendon rupture [Unknown]
  - Musculoskeletal pain [Unknown]
  - Calcinosis [Unknown]
  - Blood potassium decreased [Unknown]
  - Paraesthesia [Unknown]
